FAERS Safety Report 9348342 (Version 1)
Quarter: 2013Q2

REPORT INFORMATION
  Report Type: Spontaneous
  Country: US (occurrence: US)
  Receive Date: 20130614
  Receipt Date: 20130614
  Transmission Date: 20140414
  Serious: No
  Sender: FDA-Public Use
  Company Number: US-PFIZER INC-2013178676

PATIENT
  Age: 59 Year
  Sex: Male
  Weight: 99.77 kg

DRUGS (11)
  1. LYRICA [Suspect]
     Indication: DIABETIC NEUROPATHY
     Dosage: 50 MG, 3X/DAY
     Route: 048
     Dates: start: 201306
  2. GLUMETZA [Concomitant]
     Dosage: UNK
  3. LEVOTHYROXINE [Concomitant]
     Dosage: UNK
  4. METOPROLOL [Concomitant]
     Dosage: UNK
  5. LISINOPRIL [Concomitant]
     Dosage: UNK
  6. ASPIRIN [Concomitant]
     Dosage: UNK, 1X/DAY
  7. VITAMIN D [Concomitant]
     Dosage: UNK
  8. VITAMIN B12 [Concomitant]
     Dosage: UNK
  9. OMEGA 3 [Concomitant]
     Dosage: UNK
  10. APIDRA [Concomitant]
     Indication: DIABETES MELLITUS
     Dosage: UNK
  11. LANTUS [Concomitant]
     Indication: DIABETES MELLITUS
     Dosage: UNK

REACTIONS (1)
  - Oropharyngeal pain [Not Recovered/Not Resolved]
